FAERS Safety Report 9184936 (Version 1)
Quarter: 2013Q1

REPORT INFORMATION
  Report Type: Report from Study
  Country: US (occurrence: US)
  Receive Date: 20130325
  Receipt Date: 20130325
  Transmission Date: 20140127
  Serious: Yes (Other)
  Sender: FDA-Public Use
  Company Number: US-ABBOTT-13P-163-1060241-00

PATIENT
  Age: 49 None
  Sex: Female
  Weight: 99.88 kg

DRUGS (9)
  1. HUMIRA [Suspect]
     Indication: UVEITIS
     Route: 058
     Dates: start: 201209, end: 201302
  2. HUMIRA [Suspect]
     Route: 058
     Dates: start: 201303
  3. PREDNISONE [Concomitant]
     Indication: UVEITIS
  4. METHOTREXATE [Concomitant]
     Indication: UVEITIS
  5. OXYCODONE [Concomitant]
     Indication: PAIN
  6. PERCOCET [Concomitant]
     Indication: PAIN
  7. BAYER ASPIRIN [Concomitant]
     Indication: PRODUCT USED FOR UNKNOWN INDICATION
  8. LISINOPRIL [Concomitant]
     Indication: HYPERTENSION
  9. TRIAMTERENE AND HYDROCHLOROTHIAZID [Concomitant]
     Indication: PRODUCT USED FOR UNKNOWN INDICATION

REACTIONS (5)
  - Ligament injury [Recovering/Resolving]
  - Ankle fracture [Recovering/Resolving]
  - Fall [Recovered/Resolved]
  - Arthralgia [Recovering/Resolving]
  - Off label use [Not Recovered/Not Resolved]
